FAERS Safety Report 24919213 (Version 2)
Quarter: 2025Q2

REPORT INFORMATION
  Report Type: Spontaneous
  Country: CA (occurrence: CA)
  Receive Date: 20250204
  Receipt Date: 20250403
  Transmission Date: 20250717
  Serious: Yes (Other)
  Sender: TAKEDA
  Company Number: CA-TAKEDA-2025TUS009238

PATIENT
  Age: 76 Year
  Sex: Male
  Weight: 86 kg

DRUGS (2)
  1. GAMMAGARD LIQUID [Suspect]
     Active Substance: HUMAN IMMUNOGLOBULIN G
     Indication: Product used for unknown indication
  2. GAMMAGARD LIQUID [Suspect]
     Active Substance: HUMAN IMMUNOGLOBULIN G
     Dosage: 60 GRAM, MONTHLY
     Dates: start: 20250124

REACTIONS (7)
  - Diplopia [Recovered/Resolved]
  - Chills [Recovered/Resolved]
  - Hypertension [Recovered/Resolved]
  - Back pain [Recovered/Resolved]
  - Headache [Recovered/Resolved]
  - Dizziness [Recovered/Resolved]
  - Vision blurred [Recovered/Resolved]

NARRATIVE: CASE EVENT DATE: 20250124
